FAERS Safety Report 8422563 (Version 3)
Quarter: 2012Q4

REPORT INFORMATION
  Report Type: 
  Country: US (occurrence: US)
  Receive Date: 20120223
  Receipt Date: 20120829
  Transmission Date: 20130627
  Serious: No
  Sender: FDA-Public Use
  Company Number: US-PFIZER INC-2012042994

PATIENT
  Age: 67 Year
  Sex: Female
  Weight: 90.7 kg

DRUGS (8)
  1. BENZYLPENICILLIN POTASSIUM [Suspect]
     Dosage: UNK
  2. XANAX [Suspect]
     Indication: DEPRESSION
     Dosage: UNK
  3. TROVAN [Suspect]
     Dosage: UNK
  4. CELEXA [Suspect]
     Dosage: UNK
  5. PAXIL [Suspect]
     Indication: DEPRESSION
     Dosage: UNK
  6. PRAVASTATIN [Concomitant]
     Indication: BLOOD CHOLESTEROL ABNORMAL
     Dosage: UNK
  7. MOBIC [Concomitant]
     Dosage: UNK
  8. METFORMIN [Concomitant]
     Indication: BLOOD GLUCOSE ABNORMAL
     Dosage: UNK

REACTIONS (4)
  - Drug hypersensitivity [Unknown]
  - Panic attack [Unknown]
  - Malaise [Recovered/Resolved]
  - Dizziness [Recovered/Resolved]
